FAERS Safety Report 8219253-7 (Version None)
Quarter: 2012Q1

REPORT INFORMATION
  Report Type: 
  Country: None (occurrence: None)
  Receive Date: 20120319
  Receipt Date: 20120306
  Transmission Date: 20120608
  Serious: Yes (Death)
  Sender: FDA-Public Use
  Company Number: MX-ELI_LILLY_AND_COMPANY-MX201202008470

PATIENT
  Age: 62 Year
  Sex: Female

DRUGS (6)
  1. CLONAZEPAM [Concomitant]
     Dosage: 2 MG, QD
     Dates: start: 20020101
  2. BIPERIDEN HYDROCHLORIDE TAB [Concomitant]
     Indication: TARDIVE DYSKINESIA
     Dosage: 1 MG, QD
  3. ZYPREXA [Suspect]
     Dosage: 5 MG, QD
     Route: 065
  4. ZYPREXA [Suspect]
     Indication: MANIA
     Dosage: UNK
     Route: 065
     Dates: start: 20090101
  5. ZYPREXA [Suspect]
     Dosage: 2.5 MG, EVERY 3 DAYS
     Route: 065
     Dates: start: 20111101
  6. DEPAKENE [Concomitant]
     Dosage: 250 MG, OTHER

REACTIONS (2)
  - MYOCARDIAL INFARCTION [None]
  - INAPPROPRIATE SCHEDULE OF DRUG ADMINISTRATION [None]
